FAERS Safety Report 12634899 (Version 1)
Quarter: 2016Q3

REPORT INFORMATION
  Report Type: Spontaneous
  Country: US (occurrence: US)
  Receive Date: 20160809
  Receipt Date: 20160809
  Transmission Date: 20161109
  Serious: No
  Sender: FDA-Public Use
  Company Number: US-PFIZER INC-2016355314

PATIENT
  Age: 46 Year
  Sex: Female

DRUGS (9)
  1. MOTRIN [Suspect]
     Active Substance: IBUPROFEN
  2. ASA [Suspect]
     Active Substance: ASPIRIN
  3. DILANTIN [Suspect]
     Active Substance: PHENYTOIN
  4. TEGRETOL [Suspect]
     Active Substance: CARBAMAZEPINE
  5. TORADOL [Suspect]
     Active Substance: KETOROLAC TROMETHAMINE
  6. LEVAQUIN [Suspect]
     Active Substance: LEVOFLOXACIN
  7. PHENERGAN [Suspect]
     Active Substance: PROMETHAZINE HYDROCHLORIDE
  8. KEPPRA [Suspect]
     Active Substance: LEVETIRACETAM
  9. LAMICTAL [Suspect]
     Active Substance: LAMOTRIGINE

REACTIONS (1)
  - Drug hypersensitivity [Unknown]
